FAERS Safety Report 8018986-5 (Version None)
Quarter: 2012Q1

REPORT INFORMATION
  Report Type: 
  Country: None (occurrence: None)
  Receive Date: 20120103
  Receipt Date: 20111228
  Transmission Date: 20120608
  Serious: No
  Sender: FDA-Public Use
  Company Number: US-PFIZER INC-2011315142

PATIENT
  Sex: Female
  Weight: 71.655 kg

DRUGS (2)
  1. METOPROLOL [Concomitant]
     Indication: HYPERTENSION
     Dosage: 100 MG, UNK
  2. NIFEDIPINE [Suspect]
     Dosage: 30 MG,UNK
     Dates: start: 20111227, end: 20111228

REACTIONS (5)
  - DRUG INEFFECTIVE [None]
  - FEELING ABNORMAL [None]
  - OEDEMA MOUTH [None]
  - HEADACHE [None]
  - LIP SWELLING [None]
